FAERS Safety Report 18123579 (Version 1)
Quarter: 2020Q3

REPORT INFORMATION
  Report Type: Spontaneous
  Country: None (occurrence: US)
  Receive Date: 20200807
  Receipt Date: 20200807
  Transmission Date: 20201103
  Serious: Yes (Death)
  Sender: FDA-Public Use
  Company Number: US-BIO PRODUCTS LABORATORY LTD-2088281

PATIENT
  Age: 29 Year
  Sex: Female

DRUGS (2)
  1. GENERIC IVIG [Suspect]
     Active Substance: HUMAN IMMUNOGLOBULIN G
     Indication: PRIMARY IMMUNODEFICIENCY SYNDROME
     Route: 042
  2. TRIMETHOPRIM?SULFAMETHOXAZOLE PROPHYLAXIS [Concomitant]

REACTIONS (2)
  - Drug ineffective [Fatal]
  - Infusion related reaction [Fatal]
